FAERS Safety Report 6600241-9 (Version None)
Quarter: 2010Q1

REPORT INFORMATION
  Report Type: 
  Country: None (occurrence: None)
  Receive Date: 20100224
  Receipt Date: 20100212
  Transmission Date: 20100710
  Serious: Yes (Other)
  Sender: FDA-Public Use
  Company Number: DE-PFIZER INC-2010012695

PATIENT
  Age: 63 Year
  Sex: Male
  Weight: 61 kg

DRUGS (3)
  1. VIAGRA [Suspect]
     Indication: ERECTILE DYSFUNCTION
     Dosage: 25 MG
     Route: 048
     Dates: start: 20000101
  2. VIAGRA [Suspect]
     Dosage: 50 MG, 1-3X PER WEEK
     Route: 048
  3. VIAGRA [Suspect]
     Dosage: 100 MG, 1-3X PER WEEK
     Route: 048

REACTIONS (4)
  - DISTURBANCE IN ATTENTION [None]
  - DYSARTHRIA [None]
  - MUSCULOSKELETAL PAIN [None]
  - THINKING ABNORMAL [None]
